FAERS Safety Report 17567124 (Version 1)
Quarter: 2020Q1

REPORT INFORMATION
  Report Type: Spontaneous
  Country: US (occurrence: US)
  Receive Date: 20200320
  Receipt Date: 20200320
  Transmission Date: 20200409
  Serious: Yes (Other)
  Sender: FDA-Public Use
  Company Number: US-JNJFOC-20200317873

PATIENT
  Age: 29 Year
  Sex: Female
  Weight: 74.91 kg

DRUGS (1)
  1. REMICADE [Suspect]
     Active Substance: INFLIXIMAB
     Indication: CROHN^S DISEASE
     Route: 042
     Dates: end: 20200311

REACTIONS (7)
  - Malaise [Recovered/Resolved]
  - Feeling hot [Recovered/Resolved]
  - Unresponsive to stimuli [Recovered/Resolved]
  - Infusion related reaction [Recovered/Resolved]
  - Mydriasis [Recovered/Resolved]
  - Disorientation [Recovered/Resolved]
  - Abdominal discomfort [Recovered/Resolved]

NARRATIVE: CASE EVENT DATE: 20200311
